FAERS Safety Report 15554416 (Version 1)
Quarter: 2018Q4

REPORT INFORMATION
  Report Type: Spontaneous
  Country: CN (occurrence: CN)
  Receive Date: 20181026
  Receipt Date: 20181026
  Transmission Date: 20190205
  Serious: Yes (Other)
  Sender: FDA-Public Use
  Company Number: CN-SUN PHARMACEUTICAL INDUSTRIES LTD-2018R1-187985

PATIENT

DRUGS (4)
  1. PREDNISONE. [Suspect]
     Active Substance: PREDNISONE
     Indication: BURKITT^S LEUKAEMIA
     Dosage: 2 CYCLES (COURSES)
     Route: 065
  2. DEXAMETHASONE. [Suspect]
     Active Substance: DEXAMETHASONE
     Indication: BURKITT^S LEUKAEMIA
     Dosage: 2 CYCLES (COURSES)
     Route: 065
  3. METHOTREXATE. [Suspect]
     Active Substance: METHOTREXATE
     Indication: BURKITT^S LEUKAEMIA
     Dosage: 2 CYCLES (COURSES)
     Route: 065
  4. DOXORUBICIN [Suspect]
     Active Substance: DOXORUBICIN
     Indication: BURKITT^S LEUKAEMIA
     Dosage: 2 CYCLES (COURSES)
     Route: 065

REACTIONS (2)
  - Respiratory tract infection [Unknown]
  - Thrombosis [Unknown]
